FAERS Safety Report 7867355-7 (Version None)
Quarter: 2011Q4

REPORT INFORMATION
  Report Type: 
  Country: None (occurrence: None)
  Receive Date: 20111028
  Receipt Date: 20111025
  Transmission Date: 20120403
  Serious: Yes (Other)
  Sender: FDA-Public Use
  Company Number: GB-BRISTOL-MYERS SQUIBB COMPANY-16147746

PATIENT
  Sex: Male

DRUGS (2)
  1. ABILIFY [Suspect]
  2. OLANZAPINE [Suspect]

REACTIONS (1)
  - PSYCHOTIC DISORDER [None]
